FAERS Safety Report 7733197 (Version 6)
Quarter: 2013Q4

REPORT INFORMATION
  Report Type: Spontaneous
  Country: US (occurrence: US)
  Receive Date: 20101223
  Receipt Date: 20131220
  Transmission Date: 20140711
  Serious: Yes (Hospitalization, Other)
  Sender: FDA-Public Use
  Company Number: US-BAYER-2010-006638

PATIENT
  Age: 28 Year
  Sex: Female
  Weight: 58.96 kg

DRUGS (11)
  1. YAZ [Suspect]
     Indication: CONTRACEPTION
     Dosage: UNK
     Route: 048
     Dates: start: 20060822, end: 20090308
  2. YAZ [Suspect]
     Indication: PREMENSTRUAL SYNDROME
     Dosage: UNK
     Dates: start: 20070321, end: 200712
  3. YAZ [Suspect]
     Indication: ACNE
  4. YAZ [Suspect]
     Indication: MENSTRUAL CYCLE MANAGEMENT
  5. OCELLA [Suspect]
     Indication: PREMENSTRUAL SYNDROME
     Dosage: UNK
     Dates: start: 200811, end: 200902
  6. OCELLA [Suspect]
     Indication: ACNE
  7. OCELLA [Suspect]
     Indication: MENSTRUAL CYCLE MANAGEMENT
  8. OCELLA [Suspect]
     Indication: CONTRACEPTION
  9. MAXALT [Concomitant]
     Dosage: UNK
     Dates: start: 2007, end: 2008
  10. FIORICET [Concomitant]
     Dosage: UNK
     Dates: start: 2007, end: 2008
  11. VITAMINE C [Concomitant]

REACTIONS (5)
  - Cholecystitis chronic [Unknown]
  - Pancreatitis [Unknown]
  - Gallbladder disorder [Unknown]
  - Cholecystitis acute [Unknown]
  - Cholelithiasis [None]
